FAERS Safety Report 8767783 (Version 1)
Quarter: 2012Q4

REPORT INFORMATION
  Report Type: 
  Country: US (occurrence: US)
  Receive Date: 20120912
  Receipt Date: 20120912
  Transmission Date: 20130627
  Serious: Yes (Other)
  Sender: FDA-Public Use
  Company Number: US-ROCHE-1109892

PATIENT
  Age: 79 Year
  Sex: Female
  Weight: 54.48 kg

DRUGS (2)
  1. ZELBORAF [Suspect]
     Indication: METASTATIC MALIGNANT MELANOMA
     Route: 048
     Dates: start: 201201, end: 201202
  2. ZELBORAF [Suspect]
     Route: 048
     Dates: start: 201202

REACTIONS (8)
  - Metastases to liver [Not Recovered/Not Resolved]
  - Metastases to kidney [Not Recovered/Not Resolved]
  - Central nervous system lesion [Not Recovered/Not Resolved]
  - Bronchitis [Recovered/Resolved]
  - Sedation [Recovered/Resolved]
  - Dehydration [Recovered/Resolved]
  - Hepatic enzyme increased [Unknown]
  - Transient ischaemic attack [Recovering/Resolving]
